FAERS Safety Report 10025270 (Version 1)
Quarter: 2014Q1

REPORT INFORMATION
  Report Type: Spontaneous
  Country: US (occurrence: None)
  Receive Date: 20140304
  Receipt Date: 20140304
  Transmission Date: 20141002
  Serious: Yes (Other)
  Sender: FDA-Public Use
  Company Number: RB-50403-2013

PATIENT
  Age: 35 Year
  Sex: Female

DRUGS (2)
  1. SUBOXONE [Suspect]
     Indication: DRUG DEPENDENCE
     Dosage: (VARIED SUBLINGUAL)
     Route: 060
     Dates: start: 200607, end: 2010
  2. SUBOXONE [Suspect]
     Indication: DRUG DEPENDENCE
     Route: 060
     Dates: start: 2011, end: 20121031

REACTIONS (3)
  - Attention deficit/hyperactivity disorder [None]
  - Asthma [None]
  - Chronic obstructive pulmonary disease [None]
